FAERS Safety Report 5176945-4 (Version None)
Quarter: 2006Q4

REPORT INFORMATION
  Report Type: 
  Country: None (occurrence: None)
  Receive Date: 20061214
  Receipt Date: 20060809
  Transmission Date: 20070319
  Serious: Yes (Hospitalization)
  Sender: FDA-Public Use
  Company Number: PHHO2006US13035

PATIENT
  Age: 59 Year
  Sex: Male

DRUGS (2)
  1. MYFORTIC [Suspect]
     Indication: RENAL TRANSPLANT
     Dates: start: 20060802
  2. PROGRAF [Concomitant]
     Indication: RENAL TRANSPLANT
     Dates: start: 20060802

REACTIONS (12)
  - ABDOMINAL PAIN [None]
  - CONSTIPATION [None]
  - DECUBITUS ULCER [None]
  - ENTEROCOCCAL INFECTION [None]
  - GASTROINTESTINAL HAEMORRHAGE [None]
  - HAEMATEMESIS [None]
  - MYOSITIS [None]
  - OSTEOMYELITIS [None]
  - PAIN [None]
  - URINE OUTPUT DECREASED [None]
  - WOUND COMPLICATION [None]
  - WOUND SECRETION [None]
